FAERS Safety Report 4876798-5 (Version None)
Quarter: 2006Q1

REPORT INFORMATION
  Report Type: 
  Country: None (occurrence: None)
  Receive Date: 20060110
  Receipt Date: 20051213
  Transmission Date: 20060701
  Serious: Yes (Death, Hospitalization)
  Sender: FDA-Public Use
  Company Number: US-MERCK-0512USA02135

PATIENT
  Age: 66 Year
  Sex: Female
  Weight: 64 kg

DRUGS (6)
  1. VIOXX [Suspect]
     Indication: INTERVERTEBRAL DISC DEGENERATION
     Route: 048
     Dates: start: 20010901, end: 20030901
  2. VIOXX [Suspect]
     Indication: DIABETIC NEUROPATHY
     Route: 048
     Dates: start: 20010901, end: 20030901
  3. INSULIN [Concomitant]
     Route: 065
  4. [THERAPY UNSPECIFIED] [Concomitant]
     Indication: CARDIAC DISORDER
     Route: 065
  5. [THERAPY UNSPECIFIED] [Concomitant]
     Indication: GASTRIC DISORDER
     Route: 065
  6. [THERAPY UNSPECIFIED] [Concomitant]
     Indication: DEPRESSION
     Route: 065

REACTIONS (5)
  - AORTIC DISSECTION [None]
  - CARDIAC DISORDER [None]
  - CARDIAC TAMPONADE [None]
  - CARDIOVASCULAR DISORDER [None]
  - CONDITION AGGRAVATED [None]
